FAERS Safety Report 25377850 (Version 1)
Quarter: 2025Q2

REPORT INFORMATION
  Report Type: Spontaneous
  Country: FR (occurrence: FR)
  Receive Date: 20250530
  Receipt Date: 20250530
  Transmission Date: 20250717
  Serious: Yes (Hospitalization, Other)
  Sender: SANOFI AVENTIS
  Company Number: None

PATIENT
  Age: 75 Year
  Sex: Male
  Weight: 69.7 kg

DRUGS (11)
  1. LOVENOX [Suspect]
     Active Substance: ENOXAPARIN SODIUM
     Indication: Thrombosis prophylaxis
     Dosage: 4000 IU, QD
     Route: 058
     Dates: start: 20250328, end: 20250415
  2. PREGABALIN [Suspect]
     Active Substance: PREGABALIN
     Indication: Demyelinating polyneuropathy
     Dosage: 50 MG, BID(50 MG, MORNING AND EVENING)
     Route: 048
     Dates: start: 202411, end: 202502
  3. PREGABALIN [Suspect]
     Active Substance: PREGABALIN
     Dosage: 75 MG, TID(75 MG MORNING, MIDDAY AND EVENING, TID)
     Route: 048
     Dates: start: 202502, end: 20250328
  4. PREGABALIN [Suspect]
     Active Substance: PREGABALIN
     Dosage: 150 MG, TID(150 MG MORNING, MIDDAY AND EVENING)
     Route: 048
     Dates: start: 20250328
  5. AMITRIPTYLINE HYDROCHLORIDE [Suspect]
     Active Substance: AMITRIPTYLINE HYDROCHLORIDE
     Indication: Demyelinating polyneuropathy
     Dosage: 10 DROP, QD(10.000DROP (1/12 MILLILITRE) QD)
     Route: 048
     Dates: start: 20250328
  6. ATORVASTATIN [Suspect]
     Active Substance: ATORVASTATIN
     Indication: Ischaemic stroke
     Dosage: 80 MG, QD
     Route: 048
     Dates: start: 202410, end: 20250404
  7. KARDEGIC [Concomitant]
     Active Substance: ASPIRIN DL-LYSINE
     Indication: Ischaemic stroke
     Dosage: 160 MG, QD
     Route: 048
     Dates: start: 202410
  8. AMLODIPINE [Concomitant]
     Active Substance: AMLODIPINE BESYLATE
     Indication: Hypertension
     Dosage: 10 MG, QD
     Route: 048
     Dates: start: 202412
  9. SOLU-MEDROL [Concomitant]
     Active Substance: METHYLPREDNISOLONE SODIUM SUCCINATE
     Indication: Anti-neutrophil cytoplasmic antibody positive vasculitis
     Dosage: 500 MG, QD
     Route: 042
     Dates: start: 20250401, end: 20250403
  10. PANTOPRAZOLE [Concomitant]
     Active Substance: PANTOPRAZOLE
     Indication: Gastrooesophageal reflux disease
     Dosage: 20 MG, QD
     Route: 048
     Dates: start: 202410
  11. ACETAMINOPHEN [Concomitant]
     Active Substance: ACETAMINOPHEN
     Indication: Pain
     Dosage: 1000 MG, TID
     Route: 048

REACTIONS (2)
  - Cholestasis [Recovering/Resolving]
  - Hepatic cytolysis [Recovering/Resolving]

NARRATIVE: CASE EVENT DATE: 20250320
